FAERS Safety Report 15348421 (Version 1)
Quarter: 2018Q3

REPORT INFORMATION
  Report Type: Report from Study
  Country: US (occurrence: US)
  Receive Date: 20180904
  Receipt Date: 20180904
  Transmission Date: 20181010
  Serious: Yes (Other)
  Sender: FDA-Public Use
  Company Number: US-JNJFOC-20180723550

PATIENT
  Age: 89 Year
  Sex: Male

DRUGS (22)
  1. ZOFRAN [Suspect]
     Active Substance: ONDANSETRON HYDROCHLORIDE
     Indication: PRODUCT USED FOR UNKNOWN INDICATION
     Dosage: UNK
     Route: 065
  2. MULTIVITAMINS [Concomitant]
     Active Substance: VITAMINS
  3. VITAMIN B COMPLEX [Concomitant]
     Active Substance: CYANOCOBALAMIN\DEXPANTHENOL\NIACINAMIDE\PYRIDOXINE HYDROCHLORIDE\RIBOFLAVIN 5^-PHOSPHATE SODIUM\THIAMINE HYDROCHLORIDE\VITAMIN B COMPLEX
  4. FLOMAX [Concomitant]
     Active Substance: TAMSULOSIN HYDROCHLORIDE
  5. LEVAQUIN [Concomitant]
     Active Substance: LEVOFLOXACIN
  6. TRANDOLAPRIL. [Concomitant]
     Active Substance: TRANDOLAPRIL
  7. FINASTERIDE. [Concomitant]
     Active Substance: FINASTERIDE
  8. LEUKERAN [Concomitant]
     Active Substance: CHLORAMBUCIL
  9. CIPRO [Concomitant]
     Active Substance: CIPROFLOXACIN HYDROCHLORIDE
  10. IMBRUVICA [Suspect]
     Active Substance: IBRUTINIB
     Indication: CHRONIC LYMPHOCYTIC LEUKAEMIA
     Route: 048
     Dates: start: 20180602
  11. IMBRUVICA [Suspect]
     Active Substance: IBRUTINIB
     Indication: MALIGNANT PLEURAL EFFUSION
     Route: 048
     Dates: start: 20180802
  12. DILTIAZEM. [Concomitant]
     Active Substance: DILTIAZEM
  13. LATANOPROST. [Concomitant]
     Active Substance: LATANOPROST
  14. ATORVASTATIN CALCIUM. [Concomitant]
     Active Substance: ATORVASTATIN CALCIUM
  15. ALLOPURINOL. [Concomitant]
     Active Substance: ALLOPURINOL
  16. COUMADIN [Concomitant]
     Active Substance: WARFARIN SODIUM
  17. IMBRUVICA [Suspect]
     Active Substance: IBRUTINIB
     Indication: MALIGNANT PLEURAL EFFUSION
     Route: 048
     Dates: start: 20180602
  18. CEFALEXIN [Concomitant]
     Active Substance: CEPHALEXIN
  19. VITAMIN C [Concomitant]
     Active Substance: ASCORBIC ACID
  20. ALPHAGAN P [Concomitant]
     Active Substance: BRIMONIDINE TARTRATE
  21. IMBRUVICA [Suspect]
     Active Substance: IBRUTINIB
     Indication: CHRONIC LYMPHOCYTIC LEUKAEMIA
     Route: 048
     Dates: start: 20180802
  22. FUROSEMIDE. [Concomitant]
     Active Substance: FUROSEMIDE

REACTIONS (5)
  - Urinary tract infection [Unknown]
  - Off label use [Unknown]
  - Anuria [Recovered/Resolved]
  - Incorrect dose administered [Unknown]
  - Dizziness [Unknown]

NARRATIVE: CASE EVENT DATE: 20180602
